FAERS Safety Report 18799449 (Version 2)
Quarter: 2021Q1

REPORT INFORMATION
  Report Type: Spontaneous
  Country: CA (occurrence: CA)
  Receive Date: 20210128
  Receipt Date: 20210330
  Transmission Date: 20210419
  Serious: Yes (Other)
  Sender: FDA-Public Use
  Company Number: CA-PFIZER INC-2017205987

PATIENT
  Age: 67 Year
  Sex: Female

DRUGS (20)
  1. CRESTOR [Concomitant]
     Active Substance: ROSUVASTATIN CALCIUM
     Dosage: 5 MG, ALTERNATE DAY (ONCE EVERY 2 NIGHTS)
  2. IBRANCE [Suspect]
     Active Substance: PALBOCICLIB
     Dosage: 75 MG, CYCLIC (1XDAY 14 DAYS ON 7 DAYS OFF). REPEAT X 6.
     Route: 048
     Dates: end: 202101
  3. VALSARTAN HCT [Concomitant]
     Active Substance: HYDROCHLOROTHIAZIDE\VALSARTAN
     Dosage: UNK, DAILY
  4. CANNABIDIOL [Concomitant]
     Active Substance: CANNABIDIOL
     Dosage: UNK OIL
  5. DULOXETINE. [Concomitant]
     Active Substance: DULOXETINE
     Dosage: UNK
  6. OLANZAPINE. [Concomitant]
     Active Substance: OLANZAPINE
     Dosage: UNK
  7. PANTOLOC [Concomitant]
     Active Substance: PANTOPRAZOLE SODIUM
     Dosage: 40 MG, UNK
  8. IBRANCE [Suspect]
     Active Substance: PALBOCICLIB
     Dosage: 75 MG, CYCLIC (DAILY FOR 2 WEEKS ON AND 7 DAYS OFF)
     Route: 048
  9. SYNTHROID [Concomitant]
     Active Substance: LEVOTHYROXINE SODIUM
     Dosage: 175 UG, DAILY
  10. LETROZOLE. [Concomitant]
     Active Substance: LETROZOLE
     Dosage: UNK
  11. LORAZEPAM. [Concomitant]
     Active Substance: LORAZEPAM
     Dosage: UNK
  12. PANTOPRAZOLE [Concomitant]
     Active Substance: PANTOPRAZOLE
     Dosage: UNK
  13. ZOPICLONE [Concomitant]
     Active Substance: ZOPICLONE
     Dosage: UNK
  14. IBRANCE [Suspect]
     Active Substance: PALBOCICLIB
     Dosage: 75 MG, CYCLIC (DAILY FOR 3 WEEKS FOR 3 CYCLES, FOR 21 DAYS AND 7 DAYS OFF)
     Route: 048
     Dates: start: 20170710
  15. EXEMESTANE. [Concomitant]
     Active Substance: EXEMESTANE
     Dosage: UNK
  16. TRAMADOL. [Concomitant]
     Active Substance: TRAMADOL
     Dosage: 325 MG, AS NEEDED
  17. VITAMIN B12 [Concomitant]
     Active Substance: CYANOCOBALAMIN
     Dosage: 2500 UG, DAILY
  18. VITAMIN C [Concomitant]
     Active Substance: ASCORBIC ACID
     Dosage: 500 IU, DAILY
  19. IBRANCE [Suspect]
     Active Substance: PALBOCICLIB
     Indication: BREAST CANCER METASTATIC
     Dosage: 100 MG, CYCLIC (21 DAYS OF 28; REPEAT 6 1/12 X 4/12)
     Route: 048
     Dates: start: 20170519, end: 2017
  20. VITAMIN D3 [Concomitant]
     Active Substance: CHOLECALCIFEROL
     Dosage: 1000 IU, DAILY

REACTIONS (9)
  - Pharyngeal swelling [Unknown]
  - Eyelid disorder [Unknown]
  - Blood count abnormal [Not Recovered/Not Resolved]
  - Stomatitis [Recovered/Resolved]
  - Hypoaesthesia [Unknown]
  - Throat lesion [Recovered/Resolved]
  - Cough [Unknown]
  - Rash [Recovered/Resolved]
  - Feeling cold [Unknown]
